FAERS Safety Report 4488325-5 (Version None)
Quarter: 2004Q4

REPORT INFORMATION
  Report Type: 
  Country: None (occurrence: None)
  Receive Date: 20041028
  Receipt Date: 20041021
  Transmission Date: 20050328
  Serious: Yes (Other)
  Sender: FDA-Public Use
  Company Number: PHEH2004US11297

PATIENT
  Age: 75 Year
  Sex: Female

DRUGS (1)
  1. ZOMETA [Suspect]
     Dosage: UNKNOWN

REACTIONS (4)
  - BONE DISORDER [None]
  - IMPAIRED HEALING [None]
  - TOOTH EXTRACTION [None]
  - TOOTH INFECTION [None]
